FAERS Safety Report 5016474-1 (Version None)
Quarter: 2006Q2

REPORT INFORMATION
  Report Type: 
  Country: None (occurrence: None)
  Receive Date: 20060602
  Receipt Date: 20060523
  Transmission Date: 20061013
  Serious: Yes (Hospitalization)
  Sender: FDA-Public Use
  Company Number: US-JNJFOC-20060201629

PATIENT
  Sex: Female
  Weight: 153.32 kg

DRUGS (15)
  1. REMICADE [Suspect]
     Route: 042
  2. REMICADE [Suspect]
     Indication: RHEUMATOID ARTHRITIS
     Dosage: 4 PREVIOUS INFUSIONS
     Route: 042
  3. SULFASALAZINE [Concomitant]
  4. METHOTREXATE [Concomitant]
  5. NSAIDS [Concomitant]
  6. HYDROXYCHLOROQUINE SULFATE [Concomitant]
  7. LEFLUNOMIDE [Concomitant]
  8. DIOVAN [Concomitant]
  9. TOPROL-XL [Concomitant]
  10. NORVASC [Concomitant]
  11. LASIX [Concomitant]
  12. POTASSIUM CHLORIDE [Concomitant]
  13. RELAFEN [Concomitant]
  14. LIPITOR [Concomitant]
  15. ASPIRIN [Concomitant]

REACTIONS (3)
  - ACCELERATED HYPERTENSION [None]
  - CHEST PAIN [None]
  - INFUSION RELATED REACTION [None]
